FAERS Safety Report 15389307 (Version 1)
Quarter: 2018Q3

REPORT INFORMATION
  Report Type: Report from Study
  Country: US (occurrence: US)
  Receive Date: 20180917
  Receipt Date: 20180917
  Transmission Date: 20181010
  Serious: No
  Sender: FDA-Public Use
  Company Number: US-AMGEN-USASL2018127041

PATIENT
  Age: 48 Year
  Sex: Male

DRUGS (1)
  1. ENBREL [Suspect]
     Active Substance: ETANERCEPT
     Indication: PSORIATIC ARTHROPATHY
     Dosage: 50 MG, QWK
     Route: 065

REACTIONS (7)
  - Swelling [Unknown]
  - Injection site pruritus [Unknown]
  - Pruritus [Unknown]
  - Feeling hot [Unknown]
  - Injection site erythema [Unknown]
  - Erythema [Unknown]
  - Injection site swelling [Unknown]
